FAERS Safety Report 9380335 (Version 1)
Quarter: 2013Q3

REPORT INFORMATION
  Report Type: Report from Study
  Country: FR (occurrence: FR)
  Receive Date: 20130702
  Receipt Date: 20130702
  Transmission Date: 20140515
  Serious: Yes (Hospitalization)
  Sender: FDA-Public Use
  Company Number: FR-GLAXOSMITHKLINE-A1007385A

PATIENT
  Age: 66 Year
  Sex: Male
  Weight: 93.4 kg

DRUGS (2)
  1. TRAMETINIB [Suspect]
     Indication: NEOPLASM
     Dosage: 2MG PER DAY
     Route: 048
     Dates: start: 20121213
  2. DOCETAXEL [Suspect]
     Indication: NEOPLASM
     Dosage: 75MGM2 EVERY 3 WEEKS
     Route: 042
     Dates: start: 20121212

REACTIONS (1)
  - Pneumonia [Not Recovered/Not Resolved]
